FAERS Safety Report 8910982 (Version 1)
Quarter: 2012Q4

REPORT INFORMATION
  Report Type: 
  Country: JP (occurrence: JP)
  Receive Date: 20121115
  Receipt Date: 20121115
  Transmission Date: 20130627
  Serious: Yes (Other)
  Sender: FDA-Public Use
  Company Number: JP-WATSON-2012-19372

PATIENT
  Age: 66 Year
  Sex: Male

DRUGS (3)
  1. LEVOFLOXACIN [Suspect]
     Indication: GLOMERULONEPHRITIS CHRONIC
     Dosage: 250 mg every 48 hrs
     Route: 048
  2. LEVOFLOXACIN [Suspect]
     Dosage: 500 mg initial dose
     Route: 048
  3. PREDNISOLONE (UNKNOWN) [Suspect]
     Indication: PRODUCT USED FOR UNKNOWN INDICATION
     Dosage: 1 mg, daily
     Route: 065

REACTIONS (1)
  - Tendonitis [Recovered/Resolved]
